FAERS Safety Report 7314582-3 (Version None)
Quarter: 2011Q1

REPORT INFORMATION
  Report Type: 
  Country: None (occurrence: None)
  Receive Date: 20110225
  Receipt Date: 20101104
  Transmission Date: 20110831
  Serious: No
  Sender: FDA-Public Use
  Company Number: US-MYLANLABS-2010S1018556

PATIENT
  Age: 18 Year
  Sex: Male
  Weight: 69.85 kg

DRUGS (2)
  1. AMNESTEEM [Suspect]
     Dates: start: 20100903, end: 20100924
  2. AMNESTEEM [Suspect]
     Indication: ACNE CYSTIC
     Dates: start: 20100908, end: 20100924

REACTIONS (2)
  - FEELING ABNORMAL [None]
  - DEPRESSION [None]
